FAERS Safety Report 25237193 (Version 2)
Quarter: 2025Q2

REPORT INFORMATION
  Report Type: Spontaneous
  Country: TR (occurrence: TR)
  Receive Date: 20250425
  Receipt Date: 20250528
  Transmission Date: 20250717
  Serious: Yes (Other)
  Sender: ABBVIE
  Company Number: TR-ABBVIE-6243483

PATIENT
  Age: 68 Year
  Sex: Male

DRUGS (1)
  1. SILODOSIN [Suspect]
     Active Substance: SILODOSIN
     Indication: Pollakiuria
     Dosage: 1DOSAGE FORM, QD
     Route: 065
     Dates: start: 202503

REACTIONS (4)
  - Libido decreased [Recovered/Resolved]
  - Ejaculation failure [Recovered/Resolved]
  - Drug ineffective [Unknown]
  - Product use in unapproved indication [Unknown]
